FAERS Safety Report 20580295 (Version 2)
Quarter: 2022Q1

REPORT INFORMATION
  Report Type: Spontaneous
  Country: US (occurrence: None)
  Receive Date: 20220310
  Receipt Date: 20220314
  Transmission Date: 20220423
  Serious: No
  Sender: FDA-Public Use
  Company Number: US-ROCHE-2993216

PATIENT
  Age: 41 Year
  Sex: Female
  Weight: 74 kg

DRUGS (2)
  1. HERCEPTIN HYLECTA [Suspect]
     Active Substance: HYALURONIDASE-OYSK\TRASTUZUMAB
     Indication: Breast cancer metastatic
     Dosage: YES
     Route: 058
     Dates: start: 20211204
  2. HERCEPTIN [Suspect]
     Active Substance: TRASTUZUMAB
     Indication: Breast cancer metastatic
     Dosage: STARTED ABOUT 10 YEARS AGO WHEN FIRST DIAGNOSED ;ONGOING: NO
     Route: 042

REACTIONS (3)
  - Medication error [Unknown]
  - Local reaction [Unknown]
  - Off label use [Unknown]

NARRATIVE: CASE EVENT DATE: 20211204
